FAERS Safety Report 20908028 (Version 2)
Quarter: 2022Q2

REPORT INFORMATION
  Report Type: Other
  Country: US (occurrence: None)
  Receive Date: 20220602
  Receipt Date: 20220606
  Transmission Date: 20220720
  Serious: No
  Sender: FDA-Public Use
  Company Number: US-ROCHE-3109923

PATIENT
  Sex: Female

DRUGS (3)
  1. OCREVUS [Suspect]
     Active Substance: OCRELIZUMAB
     Indication: Multiple sclerosis
     Route: 042
  2. OCREVUS [Suspect]
     Active Substance: OCRELIZUMAB
     Indication: Relapsing multiple sclerosis
     Route: 042
  3. TYSABRI [Concomitant]
     Active Substance: NATALIZUMAB

REACTIONS (1)
  - COVID-19 [Recovering/Resolving]
